FAERS Safety Report 8326130-X (Version None)
Quarter: 2012Q2

REPORT INFORMATION
  Report Type: 
  Country: None (occurrence: None)
  Receive Date: 20120501
  Receipt Date: 20100609
  Transmission Date: 20120825
  Serious: No
  Sender: FDA-Public Use
  Company Number: US-TEVA-2010003147

PATIENT

DRUGS (1)
  1. NUVIGIL [Suspect]
     Indication: SOMNOLENCE
     Route: 048

REACTIONS (1)
  - PYREXIA [None]
